FAERS Safety Report 5477722-7 (Version None)
Quarter: 2007Q4

REPORT INFORMATION
  Report Type: 
  Country: None (occurrence: None)
  Receive Date: 20071002
  Receipt Date: 20070903
  Transmission Date: 20080405
  Serious: Yes (Other)
  Sender: FDA-Public Use
  Company Number: 8027144

PATIENT
  Age: 18 Year
  Sex: Female
  Weight: 64 kg

DRUGS (2)
  1. EQUASYM [Suspect]
     Dosage: 680 MG ONCE PO
     Route: 048
     Dates: start: 20070903, end: 20070903
  2. VOLTAREN [Suspect]
     Dosage: 675 MG ONCE PO
     Route: 048
     Dates: start: 20070903, end: 20070903

REACTIONS (5)
  - FATIGUE [None]
  - INTENTIONAL DRUG MISUSE [None]
  - MIOSIS [None]
  - SUICIDE ATTEMPT [None]
  - VOMITING [None]
